FAERS Safety Report 8391983-6 (Version None)
Quarter: 2012Q2

REPORT INFORMATION
  Report Type: 
  Country: None (occurrence: None)
  Receive Date: 20120529
  Receipt Date: 20120517
  Transmission Date: 20120825
  Serious: No
  Sender: FDA-Public Use
  Company Number: JP-JNJFOC-20120409290

PATIENT
  Age: 30 Year
  Sex: Male

DRUGS (8)
  1. MAGNESIUM OXIDE [Concomitant]
     Route: 048
  2. ALOSENN [Concomitant]
     Route: 048
  3. LENDORMIN [Concomitant]
     Route: 048
  4. FENTANYL-100 [Suspect]
     Route: 062
     Dates: start: 20110921, end: 20120410
  5. FENTANYL-100 [Suspect]
     Indication: PAIN
     Route: 062
     Dates: start: 20120413
  6. WARFARIN SODIUM [Concomitant]
     Route: 048
  7. ROHYPNOL [Concomitant]
     Route: 048
  8. UNKNOWN MEDICATION [Concomitant]

REACTIONS (2)
  - DERMATITIS CONTACT [None]
  - DRUG ADMINISTERED AT INAPPROPRIATE SITE [None]
